FAERS Safety Report 7486910-X (Version None)
Quarter: 2011Q2

REPORT INFORMATION
  Report Type: 
  Country: None (occurrence: None)
  Receive Date: 20110517
  Receipt Date: 20100505
  Transmission Date: 20111010
  Serious: No
  Sender: FDA-Public Use
  Company Number: US-AMGEN-TCS410592

PATIENT
  Age: 28 Year
  Sex: Female

DRUGS (2)
  1. ENBREL [Suspect]
     Indication: PSORIASIS
     Dosage: 50 MG, 2 TIMES/WK
     Route: 058
     Dates: start: 20100407
  2. RADIATION THERAPY [Concomitant]
     Dosage: UNK UNK, UNK
     Dates: start: 20100101

REACTIONS (7)
  - INJECTION SITE RECALL REACTION [None]
  - INJECTION SITE PRURITUS [None]
  - PHOTOTHERAPY [None]
  - INJECTION SITE INDURATION [None]
  - INJECTION SITE REACTION [None]
  - INJECTION SITE NODULE [None]
  - INJECTION SITE ERYTHEMA [None]
